FAERS Safety Report 4930013-2 (Version None)
Quarter: 2006Q1

REPORT INFORMATION
  Report Type: 
  Country: None (occurrence: None)
  Receive Date: 20060302
  Receipt Date: 20060223
  Transmission Date: 20060701
  Serious: Yes (Life-Threatening, Hospitalization)
  Sender: FDA-Public Use
  Company Number: PHRM2006FR00853

PATIENT
  Age: 59 Year
  Sex: Male

DRUGS (10)
  1. COVERSYL [Suspect]
     Dosage: 4 MG/DAY
     Route: 048
     Dates: start: 20051222, end: 20060105
  2. OMEPRAZOLE [Suspect]
     Dosage: 20 MG/DAY
     Route: 048
     Dates: start: 20051222, end: 20060104
  3. PLAVIX [Concomitant]
     Dosage: 75 MG/DAY
     Route: 048
     Dates: start: 20051201, end: 20060104
  4. DIAMICRON [Concomitant]
     Indication: DIABETES MELLITUS NON-INSULIN-DEPENDENT
     Route: 048
  5. ASPIRIN [Concomitant]
     Route: 048
     Dates: start: 20051201
  6. TAHOR [Concomitant]
     Route: 048
     Dates: start: 20051201
  7. SOPROL [Concomitant]
     Dates: start: 20051201
  8. ESOMEPRAZOLE [Concomitant]
     Route: 048
     Dates: start: 20051216, end: 20051221
  9. TRIATEC [Concomitant]
     Route: 048
     Dates: start: 20051215, end: 20051221
  10. TEGRETOL [Suspect]
     Indication: EPILEPSY
     Dosage: 200 MG/DAY
     Route: 048
     Dates: start: 19960101, end: 20060104

REACTIONS (4)
  - AGRANULOCYTOSIS [None]
  - CORONARY ANGIOPLASTY [None]
  - INFLAMMATION [None]
  - MYOCARDIAL INFARCTION [None]
